FAERS Safety Report 7242777-6 (Version None)
Quarter: 2011Q1

REPORT INFORMATION
  Report Type: 
  Country: None (occurrence: None)
  Receive Date: 20110114
  Receipt Date: 20110107
  Transmission Date: 20110831
  Serious: Yes (Other)
  Sender: FDA-Public Use
  Company Number: 025119

PATIENT
  Age: 57 Year
  Sex: Male

DRUGS (1)
  1. KEPPRA [Suspect]
     Dosage: 500 MG

REACTIONS (1)
  - BRAIN OPERATION [None]
